FAERS Safety Report 9604340 (Version 1)
Quarter: 2013Q4

REPORT INFORMATION
  Report Type: Spontaneous
  Country: GB (occurrence: GB)
  Receive Date: 20131008
  Receipt Date: 20131008
  Transmission Date: 20140711
  Serious: Yes (Other)
  Sender: FDA-Public Use
  Company Number: GB-MYLANLABS-2013S1021787

PATIENT
  Age: 79 Year
  Sex: Female

DRUGS (1)
  1. DONEPEZIL [Suspect]
     Indication: DEMENTIA WITH LEWY BODIES
     Dosage: 2.5-15MG DAILY, DOSE CONTROLLED BY PATIENT^S SON
     Route: 065

REACTIONS (4)
  - Confusional state [Unknown]
  - Fall [Unknown]
  - Drooling [Unknown]
  - Depression [Unknown]
